FAERS Safety Report 5834220-6 (Version None)
Quarter: 2008Q3

REPORT INFORMATION
  Report Type: 
  Country: None (occurrence: None)
  Receive Date: 20080722
  Receipt Date: 20080117
  Transmission Date: 20090109
  Serious: Yes (Hospitalization)
  Sender: FDA-Public Use
  Company Number: 2008BI001401

PATIENT
  Age: 50 Year
  Sex: Female
  Weight: 99.7913 kg

DRUGS (3)
  1. AVONEX [Suspect]
     Indication: MULTIPLE SCLEROSIS
     Dosage: 30 UG;QW;IM; 30 UG;QW;IM
     Route: 030
     Dates: start: 20040101, end: 20071101
  2. AVONEX [Suspect]
     Indication: MULTIPLE SCLEROSIS
     Dosage: 30 UG;QW;IM; 30 UG;QW;IM
     Route: 030
     Dates: start: 20080101
  3. SINGULAIR [Concomitant]

REACTIONS (5)
  - ABDOMINAL HERNIA [None]
  - INFLUENZA LIKE ILLNESS [None]
  - MULTIPLE SCLEROSIS RELAPSE [None]
  - NAUSEA [None]
  - UPPER RESPIRATORY TRACT INFECTION [None]
